FAERS Safety Report 15987562 (Version 2)
Quarter: 2019Q1

REPORT INFORMATION
  Report Type: Spontaneous
  Country: CA (occurrence: CA)
  Receive Date: 20190220
  Receipt Date: 20190305
  Transmission Date: 20190418
  Serious: Yes (Other)
  Sender: FDA-Public Use
  Company Number: CA-PFIZER INC-2019048116

PATIENT
  Age: 21 Year
  Sex: Female

DRUGS (3)
  1. SHINGRIX [Concomitant]
     Active Substance: RECOMBINANT VARICELLA ZOSTER VIRUS (VZV) GLYCOPROTEIN E
     Dosage: UNK (ONCE)
     Dates: start: 20190119, end: 20190119
  2. BETNESOL [BETAMETHASONE SODIUM PHOSPHATE;NEOMYCIN SULFATE] [Concomitant]
     Dosage: UNK, 1X/DAY
     Dates: start: 201812
  3. XELJANZ [Suspect]
     Active Substance: TOFACITINIB CITRATE
     Indication: COLITIS ULCERATIVE
     Dosage: 10 MG, 2X/DAY
     Route: 048
     Dates: start: 20190123

REACTIONS (8)
  - Mucous stools [Recovering/Resolving]
  - Condition aggravated [Unknown]
  - Asthenia [Recovered/Resolved]
  - Haematochezia [Recovering/Resolving]
  - Drug ineffective [Unknown]
  - Eating disorder [Recovered/Resolved]
  - Abdominal pain upper [Unknown]
  - Headache [Recovered/Resolved]

NARRATIVE: CASE EVENT DATE: 2019
